FAERS Safety Report 8825390 (Version 3)
Quarter: 2012Q4

REPORT INFORMATION
  Report Type: Report from Study
  Country: JP (occurrence: JP)
  Receive Date: 20121004
  Receipt Date: 20121214
  Transmission Date: 20130627
  Serious: Yes (Hospitalization)
  Sender: FDA-Public Use
  Company Number: JP-VERTEX PHARMACEUTICAL INC.-2012-022182

PATIENT
  Age: 69 Year
  Sex: Male

DRUGS (15)
  1. VX-950 (TELAPREVIR) [Suspect]
     Indication: CHRONIC HEPATITIS C
     Dosage: 1500 mg, qd
     Route: 048
     Dates: start: 20120904, end: 20120920
  2. VX-950 (TELAPREVIR) [Suspect]
     Dosage: 1000 mg, qd
     Route: 048
     Dates: start: 20120920, end: 20120927
  3. RIBAVIRIN [Suspect]
     Dosage: 400 mg, qd
     Route: 048
     Dates: start: 20120904, end: 20120927
  4. RIBAVIRIN [Suspect]
     Dosage: 600 mg, qd
     Route: 048
     Dates: start: 20121013, end: 20121129
  5. RIBAVIRIN [Suspect]
     Dosage: UNK
     Dates: start: 20121130
  6. PEGINTERFERON ALFA-2B [Concomitant]
     Dosage: 1.5 ?g/kg, UNK
     Route: 058
     Dates: start: 20120904, end: 20120927
  7. MUCOSTA [Concomitant]
     Dosage: 300 mg, qd
     Route: 048
  8. AMARYL [Concomitant]
     Dosage: 4 mg, qd
     Route: 048
  9. PARIET [Concomitant]
     Dosage: 10 mg, qd
     Route: 048
  10. WARFARIN [Concomitant]
     Dosage: 4 mg, qd
     Route: 048
  11. FERROMIA [Concomitant]
     Dosage: 200 mg, qd
     Route: 048
  12. AMLODIPINE BESILATE [Concomitant]
     Dosage: 5 mg, qd
     Route: 048
  13. LANIRAPID [Concomitant]
     Dosage: 0.1 mg, qd
     Route: 048
  14. URSO [Concomitant]
     Dosage: 100 mg, qd
     Route: 048
  15. DOGMATYL [Concomitant]
     Dosage: 150 mg, qd
     Route: 048
     Dates: start: 20121012

REACTIONS (3)
  - Cardiac failure [Unknown]
  - Renal disorder [Recovered/Resolved]
  - Ascites [Recovered/Resolved]
